FAERS Safety Report 6986233 (Version 2)
Quarter: 2014Q2

REPORT INFORMATION
  Report Type: Spontaneous
  Country: US (occurrence: US)
  Receive Date: 20090504
  Receipt Date: 20140415
  Transmission Date: 20141212
  Serious: Yes (Other)
  Sender: FDA-Public Use
  Company Number: US-ALEXION-A200800323

PATIENT
  Age: 25 Year
  Sex: Male

DRUGS (2)
  1. SOLIRIS [Suspect]
     Indication: PAROXYSMAL NOCTURNAL HAEMOGLOBINURIA
     Dosage: 900 MG, Q2WK
     Route: 042
  2. VICODIN ES [Concomitant]
     Indication: PAIN
     Dosage: UNK

REACTIONS (3)
  - Haemoglobin decreased [Unknown]
  - Pancytopenia [Unknown]
  - Fatigue [Recovered/Resolved]
